FAERS Safety Report 8493810 (Version 5)
Quarter: 2013Q3

REPORT INFORMATION
  Report Type: Spontaneous
  Country: US (occurrence: US)
  Receive Date: 20120404
  Receipt Date: 20130813
  Transmission Date: 20140515
  Serious: Yes (Other)
  Sender: FDA-Public Use
  Company Number: US-AMGEN-USASP2012014146

PATIENT
  Age: 0 Day
  Sex: Male
  Weight: 4.85 kg

DRUGS (4)
  1. ENBREL [Suspect]
     Indication: PRODUCT USED FOR UNKNOWN INDICATION
     Dosage: UNK, UNK
     Route: 064
  2. PRENATAL VITAMINS                  /02014401/ [Concomitant]
     Dosage: UNK UNK, QD
     Route: 064
  3. VIT D3 [Concomitant]
     Dosage: 2000 UNIT, QD
     Route: 064
  4. REMICADE [Concomitant]
     Dosage: UNK
     Route: 063
     Dates: start: 201111, end: 20120105

REACTIONS (1)
  - Large for dates baby [Unknown]
